FAERS Safety Report 25242484 (Version 1)
Quarter: 2025Q2

REPORT INFORMATION
  Report Type: Spontaneous
  Country: NL (occurrence: NL)
  Receive Date: 20250428
  Receipt Date: 20250428
  Transmission Date: 20250717
  Serious: Yes (Hospitalization, Other)
  Sender: AUROBINDO
  Company Number: NL-TEVA-2019-NL-1026991

PATIENT
  Sex: Male

DRUGS (3)
  1. TEMAZEPAM [Suspect]
     Active Substance: TEMAZEPAM
     Indication: Sedative therapy
     Dosage: 10 MILLIGRAM DAILY; ADMINISTERED AS A PILL
     Route: 065
  2. TEMAZEPAM [Suspect]
     Active Substance: TEMAZEPAM
     Dosage: 20 MILLIGRAM DAILY; ADMINISTERED AS A PILL
     Route: 065
     Dates: end: 20171113
  3. TRAMADOL [Concomitant]
     Active Substance: TRAMADOL
     Indication: Product used for unknown indication
     Route: 065

REACTIONS (3)
  - Delirium [Recovering/Resolving]
  - Hallucination [Unknown]
  - Withdrawal syndrome [Unknown]
